FAERS Safety Report 7764482-X (Version None)
Quarter: 2011Q3

REPORT INFORMATION
  Report Type: 
  Country: None (occurrence: None)
  Receive Date: 20110921
  Receipt Date: 20110504
  Transmission Date: 20111222
  Serious: No
  Sender: FDA-Public Use
  Company Number: US-BAYER-2011-039925

PATIENT
  Age: 71 Year
  Sex: Female
  Weight: 73 kg

DRUGS (5)
  1. ALEVE (CAPLET) [Suspect]
     Dosage: 1 UNIT AS NEEDED
     Route: 048
  2. METOPROLOL TARTRATE [Concomitant]
  3. ACETAMINOPHEN [Concomitant]
  4. ACETYLSALICYLIC ACID SRT [Concomitant]
  5. BENICAR [Concomitant]

REACTIONS (1)
  - BACK PAIN [None]
